FAERS Safety Report 7807717-7 (Version None)
Quarter: 2011Q4

REPORT INFORMATION
  Report Type: 
  Country: None (occurrence: None)
  Receive Date: 20111011
  Receipt Date: 20111003
  Transmission Date: 20120403
  Serious: Yes (Hospitalization, Other)
  Sender: FDA-Public Use
  Company Number: US-ACTELION-A-US2011-51062

PATIENT

DRUGS (4)
  1. AMIODARONE HCL [Suspect]
     Dosage: UNK
     Dates: end: 20110601
  2. TRACLEER [Suspect]
     Indication: PULMONARY HYPERTENSION
     Dosage: UNK
     Route: 048
     Dates: start: 20040409
  3. COUMADIN [Concomitant]
  4. CALCIUM CHANNEL BLOCKERS [Concomitant]

REACTIONS (5)
  - DYSPNOEA [None]
  - CHEST PAIN [None]
  - ATRIAL FIBRILLATION [None]
  - CARDIOVERSION [None]
  - DRUG HYPERSENSITIVITY [None]
